FAERS Safety Report 5023744-X (Version None)
Quarter: 2006Q2

REPORT INFORMATION
  Report Type: 
  Country: None (occurrence: None)
  Receive Date: 20060606
  Receipt Date: 20060526
  Transmission Date: 20061013
  Serious: Yes (Other)
  Sender: FDA-Public Use
  Company Number: TCI2006A02222

PATIENT
  Age: 64 Year
  Sex: Male

DRUGS (7)
  1. TAKEPRON [Suspect]
     Indication: REFLUX OESOPHAGITIS
     Dosage: 15 MG (15 MG, 1 IN 1 D)
     Route: 048
     Dates: start: 20060430, end: 20060523
  2. BUFFERIN [Suspect]
     Route: 048
  3. TICLOPIDINE HCL [Suspect]
     Route: 048
  4. LOSARTAN POTASSIUM [Suspect]
     Route: 048
  5. SIGMART (NICORANDIL) [Suspect]
  6. MEXITIL [Suspect]
  7. MAGNESIUM OXIDE                    (MAGNESIUM OXIDE) [Suspect]
     Route: 048

REACTIONS (2)
  - CARDIAC FAILURE [None]
  - PULMONARY ALVEOLAR HAEMORRHAGE [None]
